FAERS Safety Report 24096611 (Version 1)
Quarter: 2024Q3

REPORT INFORMATION
  Report Type: Spontaneous
  Country: JP (occurrence: JP)
  Receive Date: 20240716
  Receipt Date: 20240716
  Transmission Date: 20241016
  Serious: Yes (Other)
  Sender: ELI LILLY AND CO
  Company Number: JP-ELI_LILLY_AND_COMPANY-JP202406011581

PATIENT
  Age: 9 Year
  Sex: Female

DRUGS (1)
  1. OMVOH [Suspect]
     Active Substance: MIRIKIZUMAB-MRKZ
     Indication: Product used for unknown indication
     Dosage: UNK
     Route: 058
     Dates: start: 20240508, end: 20240605

REACTIONS (3)
  - Symptom recurrence [Unknown]
  - Off label use [Unknown]
  - Therapeutic product effect incomplete [Unknown]
